FAERS Safety Report 5806446-9 (Version None)
Quarter: 2008Q3

REPORT INFORMATION
  Report Type: 
  Country: None (occurrence: None)
  Receive Date: 20080710
  Receipt Date: 20080702
  Transmission Date: 20090109
  Serious: Yes (Hospitalization)
  Sender: FDA-Public Use
  Company Number: IT-PFIZER INC-2006137480

PATIENT
  Sex: Male

DRUGS (6)
  1. SU-011,248 [Suspect]
     Indication: RENAL CELL CARCINOMA
     Route: 048
  2. MEDROL [Concomitant]
     Route: 048
  3. TORADOL [Concomitant]
     Route: 048
     Dates: start: 20050401
  4. RANITIDINE HCL [Concomitant]
     Route: 048
     Dates: start: 20060728
  5. MS CONTIN [Concomitant]
     Route: 048
     Dates: start: 20051201, end: 20061105
  6. GABAPENTIN [Concomitant]
     Route: 048
     Dates: start: 20051201, end: 20061103

REACTIONS (1)
  - CHOLECYSTITIS [None]
